FAERS Safety Report 4826213-2 (Version None)
Quarter: 2005Q4

REPORT INFORMATION
  Report Type: 
  Country: None (occurrence: None)
  Receive Date: 20051111
  Receipt Date: 20051101
  Transmission Date: 20060501
  Serious: Yes (Hospitalization)
  Sender: FDA-Public Use
  Company Number: JP-NOVOPROD-248299

PATIENT
  Sex: Male

DRUGS (2)
  1. NOVOLIN R PENFILL CHU [Suspect]
     Indication: DIABETES MELLITUS
     Dates: start: 20050901
  2. ALL OTHER THERAPEUTIC PRODUCTS [Suspect]
     Indication: HEPATITIS B

REACTIONS (1)
  - TRANSAMINASES INCREASED [None]
